FAERS Safety Report 9447855 (Version 2)
Quarter: 2013Q4

REPORT INFORMATION
  Report Type: Spontaneous
  Country: US (occurrence: US)
  Receive Date: 20130808
  Receipt Date: 20131007
  Transmission Date: 20140711
  Serious: Yes (Hospitalization, Other)
  Sender: FDA-Public Use
  Company Number: US-009507513-1204USA01791

PATIENT
  Sex: Female
  Weight: 72.56 kg

DRUGS (2)
  1. FOSAMAX [Suspect]
     Indication: OSTEOPENIA
     Dosage: 10 MG, UNK
     Route: 048
     Dates: start: 1995, end: 20001020
  2. FOSAMAX [Suspect]
     Dosage: 70 MG, UNK
     Route: 048
     Dates: start: 20001020, end: 20070905

REACTIONS (14)
  - Intramedullary rod insertion [Unknown]
  - Joint arthroplasty [Unknown]
  - Meniscus removal [Unknown]
  - Femur fracture [Unknown]
  - Low turnover osteopathy [Unknown]
  - Migraine [Unknown]
  - Adverse event [Unknown]
  - Osteoarthritis [Unknown]
  - Spinal osteoarthritis [Not Recovered/Not Resolved]
  - Lumbar spinal stenosis [Unknown]
  - Facet joint syndrome [Unknown]
  - Eye disorder [Unknown]
  - Pain in extremity [Unknown]
  - Gastrooesophageal reflux disease [Unknown]
